FAERS Safety Report 13234761 (Version 1)
Quarter: 2017Q1

REPORT INFORMATION
  Report Type: Report from Study
  Country: None (occurrence: US)
  Receive Date: 20170215
  Receipt Date: 20170215
  Transmission Date: 20170428
  Serious: Yes (Hospitalization, Other)
  Sender: FDA-Public Use
  Company Number: US-AMAG PHARMACEUTICALS, INC.-AMAG201602608

PATIENT

DRUGS (2)
  1. MAKENA [Suspect]
     Active Substance: HYDROXYPROGESTERONE CAPROATE
     Indication: PREMATURE DELIVERY
     Dosage: 250 MG, WEEKLY
     Route: 065
     Dates: start: 20160922, end: 20161117
  2. MAGNESIUM [Suspect]
     Active Substance: MAGNESIUM
     Route: 065

REACTIONS (3)
  - Premature delivery [Recovered/Resolved]
  - Premature rupture of membranes [Recovered/Resolved]
  - Amniotic cavity infection [Unknown]

NARRATIVE: CASE EVENT DATE: 2016
